FAERS Safety Report 5158524-8 (Version None)
Quarter: 2006Q4

REPORT INFORMATION
  Report Type: 
  Country: None (occurrence: None)
  Receive Date: 20061117
  Receipt Date: 20061103
  Transmission Date: 20070319
  Serious: No
  Sender: FDA-Public Use
  Company Number: E2020-00657-SPO-FR

PATIENT
  Age: 80 Year
  Sex: Female

DRUGS (2)
  1. ARICEPT [Suspect]
     Indication: DEMENTIA ALZHEIMER'S TYPE
     Dosage: ORAL
     Route: 048
     Dates: start: 20060701, end: 20060806
  2. TENORETIC 100 [Suspect]
     Indication: HYPERTENSION
     Dosage: ORAL
     Route: 048
     Dates: end: 20060806

REACTIONS (4)
  - DEHYDRATION [None]
  - DIARRHOEA [None]
  - DRUG INTERACTION [None]
  - HYPOKALAEMIA [None]
